FAERS Safety Report 22252258 (Version 4)
Quarter: 2023Q2

REPORT INFORMATION
  Report Type: Spontaneous
  Country: US (occurrence: US)
  Receive Date: 20230426
  Receipt Date: 20230506
  Transmission Date: 20230722
  Serious: No
  Sender: FDA-Public Use
  Company Number: US-UNITED THERAPEUTICS-UNT-2023-010835

PATIENT
  Age: 86 Year
  Sex: Female
  Weight: 50.34 kg

DRUGS (6)
  1. TYVASO [Suspect]
     Active Substance: TREPROSTINIL
     Indication: Pulmonary arterial hypertension
     Dosage: 18 ?G, QID
  2. TYVASO [Suspect]
     Active Substance: TREPROSTINIL
     Dosage: 36 ?G, QID
  3. TYVASO [Suspect]
     Active Substance: TREPROSTINIL
     Dosage: UNK
     Dates: start: 20230331
  4. GLUTEN [Suspect]
     Active Substance: WHEAT GLUTEN
     Indication: Product used for unknown indication
     Dosage: UNK
     Route: 065
  5. SILDENAFIL CITRATE [Concomitant]
     Active Substance: SILDENAFIL CITRATE
     Indication: Product used for unknown indication
     Dosage: UNK
     Route: 065
  6. AMBRISENTAN [Concomitant]
     Active Substance: AMBRISENTAN
     Indication: Product used for unknown indication
     Dosage: UNK
     Route: 065

REACTIONS (8)
  - COVID-19 [Recovering/Resolving]
  - Insomnia [Unknown]
  - Nasopharyngitis [Recovering/Resolving]
  - Oropharyngeal pain [Unknown]
  - Nasal congestion [Unknown]
  - Fatigue [Unknown]
  - Cough [Unknown]
  - Diarrhoea [Unknown]

NARRATIVE: CASE EVENT DATE: 20230401
